FAERS Safety Report 5423708-8 (Version None)
Quarter: 2007Q3

REPORT INFORMATION
  Report Type: 
  Country: None (occurrence: None)
  Receive Date: 20070725
  Receipt Date: 20070209
  Transmission Date: 20080115
  Serious: Yes (Other)
  Sender: FDA-Public Use
  Company Number: US200702002042

PATIENT
  Age: 16 Year
  Sex: Male

DRUGS (3)
  1. STRATTERA [Suspect]
     Indication: ATTENTION DEFICIT/HYPERACTIVITY DISORDER
     Dosage: 60 MG, DAILY (1/D),
     Dates: start: 20051202, end: 20070209
  2. SEROQUEL [Concomitant]
  3. TAMIFUL (OSELTAMIVIR PHOSPHATE) [Concomitant]

REACTIONS (1)
  - CONVULSION [None]
